FAERS Safety Report 5575700-0 (Version None)
Quarter: 2007Q4

REPORT INFORMATION
  Report Type: 
  Country: None (occurrence: None)
  Receive Date: 20071226
  Receipt Date: 20071210
  Transmission Date: 20080405
  Serious: Yes (Hospitalization, Other)
  Sender: FDA-Public Use
  Company Number: ADE2007-0074

PATIENT
  Age: 55 Year
  Sex: Female

DRUGS (4)
  1. CITALOPRAM HYDROBROMIDE [Suspect]
     Indication: DEPRESSION
     Dosage: 20 MG - QD
     Dates: start: 20050701
  2. IMIPRAMINE [Suspect]
     Indication: DEPRESSION
     Dosage: 25 MG - QD
     Dates: end: 20050701
  3. IMIPRAMINE [Suspect]
     Indication: DEPRESSION
     Dosage: 25 MG - QD
     Dates: start: 20060509, end: 20060707
  4. MIRTAZAPINE [Concomitant]

REACTIONS (2)
  - ANGLE CLOSURE GLAUCOMA [None]
  - ANXIETY DISORDER [None]
